FAERS Safety Report 15629740 (Version 5)
Quarter: 2019Q1

REPORT INFORMATION
  Report Type: Report from Study
  Country: BR (occurrence: BR)
  Receive Date: 20181117
  Receipt Date: 20190215
  Transmission Date: 20190417
  Serious: Yes (Death, Hospitalization, Other)
  Sender: FDA-Public Use
  Company Number: BR-AMGEN-BRACT2011052233

PATIENT
  Age: 69 Year
  Sex: Female
  Weight: 60 kg

DRUGS (12)
  1. ACTONEL [Concomitant]
     Active Substance: RISEDRONATE SODIUM
     Dosage: 150 MG, QMO
  2. OMEPRAZOLE. [Concomitant]
     Active Substance: OMEPRAZOLE
     Dosage: 20 MG, QD
  3. LIPLESS [Concomitant]
     Active Substance: CIPROFIBRATE
     Dosage: UNK
  4. ENBREL [Suspect]
     Active Substance: ETANERCEPT
     Dosage: 50 MG, ONCE WEEKLY
     Route: 058
     Dates: start: 2009, end: 201101
  5. AAS [Concomitant]
     Active Substance: ASPIRIN
     Dosage: UNK
  6. SIMVASTATIN. [Concomitant]
     Active Substance: SIMVASTATIN
     Dosage: UNK
  7. ENBREL [Suspect]
     Active Substance: ETANERCEPT
     Indication: RHEUMATOID ARTHRITIS
     Dosage: 50 MG, WEEKLY
     Route: 058
     Dates: start: 2009
  8. TECNOMET [Concomitant]
     Active Substance: METHOTREXATE
     Dosage: 7.5 MG, QWK
  9. ENDOFOLIN [Concomitant]
     Active Substance: FOLIC ACID
     Dosage: 5 MG, QWK
  10. ENBREL [Suspect]
     Active Substance: ETANERCEPT
     Dosage: 25 MG, 2 TIMES/WK
     Route: 065
  11. CALCIUM [Concomitant]
     Active Substance: CALCIUM
     Dosage: 600 MG, QD
  12. COLECALCIFEROL [Concomitant]
     Active Substance: CHOLECALCIFEROL
     Dosage: 8 DROPS DAILY

REACTIONS (6)
  - Gastrointestinal carcinoma [Fatal]
  - Iron deficiency anaemia [Unknown]
  - Gastric disorder [Unknown]
  - Viral infection [Unknown]
  - Groin infection [Unknown]
  - Infection [Unknown]

NARRATIVE: CASE EVENT DATE: 2017
